FAERS Safety Report 25655025 (Version 2)
Quarter: 2025Q3

REPORT INFORMATION
  Report Type: Spontaneous
  Country: CA (occurrence: CA)
  Receive Date: 20250807
  Receipt Date: 20250807
  Transmission Date: 20251021
  Serious: Yes (Hospitalization)
  Sender: PFIZER
  Company Number: CA-PFIZER INC-202500158547

PATIENT
  Age: 70 Year
  Sex: Female
  Weight: 98 kg

DRUGS (6)
  1. FRAGMIN [Suspect]
     Active Substance: DALTEPARIN SODIUM
     Indication: Thrombosis prophylaxis
     Dosage: 5000 IU, 1 EVERY 1 DAYS (SOLUTION INTRAVENOUS)
  2. HEPARIN SODIUM [Suspect]
     Active Substance: HEPARIN SODIUM
     Indication: Acute myocardial infarction
     Route: 042
  3. ASPIRIN [Suspect]
     Active Substance: ASPIRIN
     Indication: Arteriosclerosis coronary artery
     Dosage: 80 MG, 1 EVERY 1 DAYS
  4. CLOPIDOGREL [Suspect]
     Active Substance: CLOPIDOGREL BISULFATE
     Indication: Acute myocardial infarction
     Dosage: 75 MG, 1 EVERY 1 DAYS
     Route: 048
  5. AMOXICILLIN\CLAVULANATE POTASSIUM [Concomitant]
     Active Substance: AMOXICILLIN\CLAVULANATE POTASSIUM
  6. ERTAPENEM [Concomitant]
     Active Substance: ERTAPENEM

REACTIONS (2)
  - Gastric ulcer [Recovered/Resolved]
  - Upper gastrointestinal haemorrhage [Recovered/Resolved]
